FAERS Safety Report 15155154 (Version 1)
Quarter: 2018Q3

REPORT INFORMATION
  Report Type: Spontaneous
  Country: US (occurrence: US)
  Receive Date: 20180717
  Receipt Date: 20180717
  Transmission Date: 20181010
  Serious: No
  Sender: FDA-Public Use
  Company Number: US-PFIZER INC-2018287608

PATIENT
  Age: 82 Year
  Sex: Female

DRUGS (1)
  1. ADVIL [Suspect]
     Active Substance: IBUPROFEN
     Indication: HEADACHE
     Dosage: 200 MG, 1X/DAY (200 MG TABLET USUALLY ONCE A DAY BY MOUTH)
     Route: 048
     Dates: end: 201807

REACTIONS (3)
  - Product size issue [Unknown]
  - Abdominal pain upper [Not Recovered/Not Resolved]
  - Dysphagia [Unknown]
